FAERS Safety Report 7561682-9 (Version None)
Quarter: 2011Q2

REPORT INFORMATION
  Report Type: 
  Country: None (occurrence: None)
  Receive Date: 20110621
  Receipt Date: 20110125
  Transmission Date: 20111010
  Serious: No
  Sender: FDA-Public Use
  Company Number: US-ASTRAZENECA-2011SE04372

PATIENT
  Age: 48 Year
  Sex: Female

DRUGS (3)
  1. RHINOCORT [Suspect]
     Route: 045
  2. ATACAND HCT [Concomitant]
  3. SYMBICORT [Concomitant]

REACTIONS (2)
  - NASAL CONGESTION [None]
  - DYSPNOEA [None]
